FAERS Safety Report 7131113-1 (Version None)
Quarter: 2010Q4

REPORT INFORMATION
  Report Type: 
  Country: None (occurrence: None)
  Receive Date: 20101201
  Receipt Date: 20101119
  Transmission Date: 20110411
  Serious: Yes (Hospitalization, Other)
  Sender: FDA-Public Use
  Company Number: ES-ELI_LILLY_AND_COMPANY-ES201011005393

PATIENT
  Sex: Female
  Weight: 48.5 kg

DRUGS (8)
  1. FORTEO [Suspect]
     Indication: OSTEOPOROSIS
     Dosage: 20 UG, DAILY (1/D)
     Route: 058
     Dates: start: 20081201
  2. FORTEO [Suspect]
     Dosage: 20 UG, DAILY (1/D)
     Route: 058
  3. DIGOXIN [Concomitant]
     Indication: ARRHYTHMIA
     Dosage: 1 D/F, DAILY (1/D)
     Route: 048
  4. SEGURIL [Concomitant]
     Indication: HYPERTENSION
     Dosage: 40 MG, 2/D
     Route: 048
  5. NATECAL D [Concomitant]
     Indication: OSTEOPOROSIS
     Dosage: 1 D/F, 2/D
     Route: 048
  6. FERPLEX [Concomitant]
     Indication: ANAEMIA
     Dosage: 40 MG, DAILY (1/D)
     Route: 048
  7. FOLI DOCE [Concomitant]
     Indication: ANAEMIA
     Dosage: 1 D/F, DAILY (1/D)
     Route: 048
  8. CAPOTEN [Concomitant]
     Indication: HYPERTENSION
     Dosage: 1 D/F, DAILY (1/D)
     Route: 065

REACTIONS (4)
  - ANAEMIA [None]
  - PNEUMONIA [None]
  - TRANSAMINASES ABNORMAL [None]
  - WEIGHT DECREASED [None]
